FAERS Safety Report 21578838 (Version 2)
Quarter: 2022Q4

REPORT INFORMATION
  Report Type: Spontaneous
  Country: JP (occurrence: JP)
  Receive Date: 20221110
  Receipt Date: 20221121
  Transmission Date: 20230112
  Serious: Yes (Other)
  Sender: FDA-Public Use
  Company Number: JP-PFIZER INC-202201286173

PATIENT
  Age: 68 Year
  Sex: Female

DRUGS (1)
  1. BINIMETINIB [Suspect]
     Active Substance: BINIMETINIB
     Indication: Colorectal cancer metastatic
     Dosage: 300 MG, DAILY
     Route: 048

REACTIONS (2)
  - Serous retinal detachment [Unknown]
  - Off label use [Unknown]
